FAERS Safety Report 8894074 (Version 1)
Quarter: 2012Q4

REPORT INFORMATION
  Report Type: 
  Country: CA (occurrence: CA)
  Receive Date: 20121108
  Receipt Date: 20121108
  Transmission Date: 20130627
  Serious: Yes (Hospitalization)
  Sender: FDA-Public Use
  Company Number: CA-SHIRE-ALL1-2012-05212

PATIENT
  Age: 19 Year
  Sex: Male

DRUGS (1)
  1. ADDERALL XR [Suspect]
     Indication: ATTENTION DEFICIT/HYPERACTIVITY DISORDER
     Dosage: 50 mg, 1x/day:qd
     Route: 048

REACTIONS (2)
  - Pneumothorax [Unknown]
  - Overdose [Unknown]
